FAERS Safety Report 14399513 (Version 2)
Quarter: 2018Q1

REPORT INFORMATION
  Report Type: Spontaneous
  Country: US (occurrence: US)
  Receive Date: 20180117
  Receipt Date: 20180308
  Transmission Date: 20180509
  Serious: No
  Sender: FDA-Public Use
  Company Number: US-JNJFOC-20171236342

PATIENT
  Sex: Female

DRUGS (2)
  1. XARELTO [Suspect]
     Active Substance: RIVAROXABAN
     Indication: PRODUCT USED FOR UNKNOWN INDICATION
     Route: 048
     Dates: start: 201612
  2. LIPITOR [Concomitant]
     Active Substance: ATORVASTATIN CALCIUM
     Indication: BLOOD CHOLESTEROL
     Route: 065

REACTIONS (7)
  - Fall [Recovered/Resolved]
  - Contusion [Recovered/Resolved]
  - Inflammation [Unknown]
  - Haematoma [Recovered/Resolved]
  - Swelling [Recovered/Resolved]
  - Osteoarthritis [Unknown]
  - Fracture [Unknown]

NARRATIVE: CASE EVENT DATE: 20171203
